FAERS Safety Report 17611315 (Version 2)
Quarter: 2020Q3

REPORT INFORMATION
  Report Type: Report from Study
  Country: None (occurrence: US)
  Receive Date: 20200401
  Receipt Date: 20200828
  Transmission Date: 20201102
  Serious: Yes (Hospitalization, Other)
  Sender: FDA-Public Use
  Company Number: US-ABBVIE-19K-163-3185111-00

PATIENT
  Sex: Male

DRUGS (8)
  1. IMBRUVICA [Suspect]
     Active Substance: IBRUTINIB
     Dosage: JUNE OR JUL OF 2018
     Route: 048
     Dates: start: 2018
  2. IMBRUVICA [Suspect]
     Active Substance: IBRUTINIB
     Route: 048
  3. IMBRUVICA [Suspect]
     Active Substance: IBRUTINIB
     Indication: WALDENSTROM^S MACROGLOBULINAEMIA
     Route: 048
  4. LEVOTHYROXINE. [Concomitant]
     Active Substance: LEVOTHYROXINE
     Indication: PRODUCT USED FOR UNKNOWN INDICATION
  5. IMBRUVICA [Suspect]
     Active Substance: IBRUTINIB
     Dosage: ONCE EVERY 4 DAYS
     Route: 048
  6. IMBRUVICA [Suspect]
     Active Substance: IBRUTINIB
     Route: 048
     Dates: start: 20191210, end: 201912
  7. IMBRUVICA [Suspect]
     Active Substance: IBRUTINIB
     Indication: PRODUCT USED FOR UNKNOWN INDICATION
     Route: 048
  8. IMBRUVICA [Suspect]
     Active Substance: IBRUTINIB
     Route: 048

REACTIONS (13)
  - Overdose [Recovered/Resolved]
  - Weight increased [Unknown]
  - Blood immunoglobulin M abnormal [Recovering/Resolving]
  - Malaise [Recovering/Resolving]
  - Laboratory test abnormal [Not Recovered/Not Resolved]
  - Emotional disorder [Not Recovered/Not Resolved]
  - Weight decreased [Recovering/Resolving]
  - Off label use [Unknown]
  - Thrombocytopenia [Unknown]
  - Asthenia [Recovered/Resolved]
  - Sepsis [Unknown]
  - White blood cell count decreased [Recovered/Resolved]
  - Insomnia [Not Recovered/Not Resolved]

NARRATIVE: CASE EVENT DATE: 2017
